FAERS Safety Report 15847878 (Version 1)
Quarter: 2019Q1

REPORT INFORMATION
  Report Type: Spontaneous
  Country: NL (occurrence: NL)
  Receive Date: 20190121
  Receipt Date: 20190121
  Transmission Date: 20190417
  Serious: Yes (Hospitalization)
  Sender: FDA-Public Use
  Company Number: NL-STRIDES ARCOLAB LIMITED-2019SP000541

PATIENT
  Age: 51 Year
  Sex: Female

DRUGS (2)
  1. AMLODIPINE [Suspect]
     Active Substance: AMLODIPINE BESYLATE
     Indication: HYPERTENSION
     Dosage: 5 MG, UNKNOWN (30 TABLETS)
     Route: 048
  2. PERINDOPRIL/INDAPAMIDE [Suspect]
     Active Substance: INDAPAMIDE\PERINDOPRIL
     Indication: HYPERTENSION
     Dosage: 4/1.25MG (80 TABLETS)
     Route: 048

REACTIONS (7)
  - Shock [Unknown]
  - Metabolic acidosis [Unknown]
  - Overdose [Unknown]
  - Bradycardia [Unknown]
  - Suicide attempt [Unknown]
  - Cardiogenic shock [Unknown]
  - Anuria [Unknown]
